FAERS Safety Report 9082313 (Version 1)
Quarter: 2013Q1

REPORT INFORMATION
  Report Type: Report from Study
  Country: US (occurrence: US)
  Receive Date: 20130130
  Receipt Date: 20130130
  Transmission Date: 20140127
  Serious: No
  Sender: FDA-Public Use
  Company Number: US-ABBOTT-12P-163-0923592-00

PATIENT
  Age: 31 None
  Sex: Female

DRUGS (3)
  1. HUMIRA 40 MG/0.8 ML PEN [Suspect]
     Indication: RHEUMATOID ARTHRITIS
     Route: 058
     Dates: start: 20120127, end: 20120129
  2. METHOTREXATE [Concomitant]
     Indication: RHEUMATOID ARTHRITIS
  3. FOLIC ACID [Concomitant]
     Indication: PRODUCT USED FOR UNKNOWN INDICATION

REACTIONS (11)
  - Tongue discolouration [Recovering/Resolving]
  - Pain [Recovering/Resolving]
  - Hyperaesthesia [Recovering/Resolving]
  - Glossitis [Recovering/Resolving]
  - Tongue dry [Recovering/Resolving]
  - Candida infection [Recovering/Resolving]
  - Lichen planus [Unknown]
  - Rash [Unknown]
  - Autoimmune disorder [Unknown]
  - Arthralgia [Not Recovered/Not Resolved]
  - Rheumatoid arthritis [Not Recovered/Not Resolved]
